FAERS Safety Report 16017336 (Version 1)
Quarter: 2019Q1

REPORT INFORMATION
  Report Type: Spontaneous
  Country: US (occurrence: US)
  Receive Date: 20190228
  Receipt Date: 20190228
  Transmission Date: 20190418
  Serious: No
  Sender: FDA-Public Use
  Company Number: US-TEVA-2019-US-1006632

PATIENT
  Sex: Female

DRUGS (1)
  1. DIAZEPAM IVAX [Suspect]
     Active Substance: DIAZEPAM
     Indication: SLEEP DISORDER
     Route: 065

REACTIONS (3)
  - Productive cough [Unknown]
  - Lactose intolerance [Unknown]
  - Rhinorrhoea [Unknown]
